FAERS Safety Report 13131297 (Version 1)
Quarter: 2017Q1

REPORT INFORMATION
  Report Type: Spontaneous
  Country: SI (occurrence: SI)
  Receive Date: 20170119
  Receipt Date: 20170119
  Transmission Date: 20170428
  Serious: Yes (Death, Other)
  Sender: FDA-Public Use
  Company Number: SI-JNJFOC-20170116640

PATIENT
  Age: 74 Year
  Sex: Male

DRUGS (3)
  1. XARELTO [Suspect]
     Active Substance: RIVAROXABAN
     Indication: ATRIAL FIBRILLATION
     Route: 048
     Dates: start: 20150304
  2. XARELTO [Suspect]
     Active Substance: RIVAROXABAN
     Indication: ATRIAL FIBRILLATION
     Route: 048
     Dates: start: 20140806
  3. XARELTO [Suspect]
     Active Substance: RIVAROXABAN
     Indication: ATRIAL FIBRILLATION
     Route: 048
     Dates: start: 20150930

REACTIONS (16)
  - Ascites [Unknown]
  - Renal impairment [Unknown]
  - Blood creatinine increased [Unknown]
  - Abdominal pain [Unknown]
  - Liver disorder [Unknown]
  - Choking [Unknown]
  - Blood alkaline phosphatase increased [Unknown]
  - Cardiac failure [Unknown]
  - Heart rate increased [Unknown]
  - Death [Fatal]
  - Cholestasis [Unknown]
  - Drug-induced liver injury [Unknown]
  - Gamma-glutamyltransferase increased [Unknown]
  - Peripheral swelling [Unknown]
  - Abnormal loss of weight [Unknown]
  - Thirst [Unknown]

NARRATIVE: CASE EVENT DATE: 201506
